FAERS Safety Report 7551339 (Version 4)
Quarter: 2013Q4

REPORT INFORMATION
  Report Type: Spontaneous
  Country: US (occurrence: US)
  Receive Date: 20100824
  Receipt Date: 20131224
  Transmission Date: 20140711
  Serious: Yes (Other)
  Sender: FDA-Public Use
  Company Number: US-BAYER-201028662NA

PATIENT
  Age: 17 Year
  Sex: Female
  Weight: 72.73 kg

DRUGS (7)
  1. YASMIN [Suspect]
     Indication: CONTRACEPTION
     Route: 048
     Dates: start: 200508, end: 200803
  2. YAZ [Suspect]
     Indication: PRODUCT USED FOR UNKNOWN INDICATION
     Route: 048
     Dates: start: 200506
  3. ALBUTEROL [Concomitant]
     Indication: ASTHMA
     Dosage: 2 PUFFS TID PRN
     Dates: start: 20060421
  4. PROMETHAZINE [Concomitant]
     Dates: start: 20060628
  5. LEVAQUIN [Concomitant]
     Dates: start: 20060630
  6. AVELOX [Concomitant]
     Dates: start: 200607
  7. CIPROFLOXACIN [Concomitant]
     Dates: start: 200603

REACTIONS (3)
  - Cholelithiasis [Unknown]
  - Abdominal pain [Unknown]
  - Cholecystitis chronic [None]
